FAERS Safety Report 6433955-4 (Version None)
Quarter: 2009Q4

REPORT INFORMATION
  Report Type: 
  Country: None (occurrence: None)
  Receive Date: 20091106
  Receipt Date: 20091106
  Transmission Date: 20100525
  Serious: Yes (Hospitalization)
  Sender: FDA-Public Use
  Company Number: None

PATIENT
  Age: 73 Year
  Sex: Female
  Weight: 40.6 kg

DRUGS (3)
  1. SUTENT [Suspect]
     Indication: RENAL CANCER METASTATIC
     Dosage: 25 MG PO
     Route: 048
     Dates: start: 20091021
  2. SUTENT [Suspect]
  3. SUTENT [Suspect]
     Indication: RENAL CANCER METASTATIC
     Dosage: 12.5 MG PO
     Route: 048
     Dates: start: 20091021

REACTIONS (6)
  - ASTHENIA [None]
  - FATIGUE [None]
  - HYPOPHAGIA [None]
  - MOBILITY DECREASED [None]
  - NUTRITIONAL CONDITION ABNORMAL [None]
  - RHABDOMYOLYSIS [None]
